FAERS Safety Report 8525879-3 (Version None)
Quarter: 2012Q3

REPORT INFORMATION
  Report Type: 
  Country: None (occurrence: None)
  Receive Date: 20120720
  Receipt Date: 20120717
  Transmission Date: 20120928
  Serious: Yes (Other)
  Sender: FDA-Public Use
  Company Number: PHHY2012PL061855

PATIENT
  Sex: Female
  Weight: 75 kg

DRUGS (2)
  1. METHOTREXATE [Suspect]
     Indication: RHEUMATOID ARTHRITIS
  2. METHOTREXATE [Suspect]
     Dosage: 25 MG, PER WEEK
     Route: 058
     Dates: start: 20120201, end: 20120601

REACTIONS (3)
  - NAUSEA [None]
  - ABDOMINAL PAIN [None]
  - FLATULENCE [None]
